FAERS Safety Report 12627267 (Version 1)
Quarter: 2016Q3

REPORT INFORMATION
  Report Type: Report from Study
  Country: US (occurrence: US)
  Receive Date: 20160805
  Receipt Date: 20160805
  Transmission Date: 20161109
  Serious: Yes (Hospitalization)
  Sender: FDA-Public Use
  Company Number: US-ABBVIE-16K-163-1676561-00

PATIENT
  Age: 37 Year
  Sex: Female
  Weight: 61.29 kg

DRUGS (1)
  1. HUMIRA [Suspect]
     Active Substance: ADALIMUMAB
     Indication: CROHN^S DISEASE
     Route: 058
     Dates: start: 20150706, end: 20160711

REACTIONS (8)
  - Abdominal abscess [Unknown]
  - Crohn^s disease [Recovering/Resolving]
  - Abscess intestinal [Recovered/Resolved]
  - Intestinal fistula [Recovered/Resolved]
  - Tachycardia [Not Recovered/Not Resolved]
  - Pelvic abscess [Unknown]
  - Anaemia [Unknown]
  - Atrial fibrillation [Recovered/Resolved]

NARRATIVE: CASE EVENT DATE: 201607
